FAERS Safety Report 21105649 (Version 2)
Quarter: 2022Q3

REPORT INFORMATION
  Report Type: Spontaneous
  Country: US (occurrence: US)
  Receive Date: 20220720
  Receipt Date: 20220721
  Transmission Date: 20221027
  Serious: Yes (Other)
  Sender: FDA-Public Use
  Company Number: US-PFIZER INC-202200986484

PATIENT
  Age: 39 Year
  Sex: Female
  Weight: 63.492 kg

DRUGS (2)
  1. MISOPROSTOL [Suspect]
     Active Substance: MISOPROSTOL
     Indication: Abortion
     Dosage: 500 MG
     Dates: start: 20211112
  2. MISOPROSTOL [Suspect]
     Active Substance: MISOPROSTOL
     Dosage: 500 MG
     Dates: start: 20211117

REACTIONS (3)
  - Haemorrhage [Unknown]
  - Maternal exposure during pregnancy [Unknown]
  - Off label use [Unknown]

NARRATIVE: CASE EVENT DATE: 20211117
